FAERS Safety Report 10216921 (Version 1)
Quarter: 2014Q2

REPORT INFORMATION
  Report Type: Spontaneous
  Country: FR (occurrence: FR)
  Receive Date: 20140604
  Receipt Date: 20140604
  Transmission Date: 20141212
  Serious: Yes (Hospitalization)
  Sender: FDA-Public Use
  Company Number: FR-GILEAD-2014-0103980

PATIENT
  Age: 54 Year
  Sex: Female
  Weight: 29.5 kg

DRUGS (3)
  1. VIREAD [Suspect]
     Indication: HIV INFECTION
     Dosage: 250 MG, QD
     Route: 048
     Dates: end: 20140323
  2. VIDEX [Suspect]
     Indication: HIV INFECTION
     Dosage: 250 MG, QD
     Route: 048
     Dates: end: 20140323
  3. SUSTIVA [Concomitant]
     Dosage: 400 MG, QD
     Route: 065

REACTIONS (4)
  - Anaemia [Not Recovered/Not Resolved]
  - Hypomagnesaemia [Recovering/Resolving]
  - Lipase increased [Recovered/Resolved]
  - Hypophosphataemia [Recovering/Resolving]
